FAERS Safety Report 25380651 (Version 2)
Quarter: 2025Q2

REPORT INFORMATION
  Report Type: Report from Study
  Country: US (occurrence: US)
  Receive Date: 20250530
  Receipt Date: 20250606
  Transmission Date: 20250716
  Serious: No
  Sender: MALLINCKRODT
  Company Number: US-MALLINCKRODT-MNK202502913

PATIENT
  Sex: Male

DRUGS (1)
  1. CORTICOTROPIN [Suspect]
     Active Substance: CORTICOTROPIN
     Indication: Psoriatic arthropathy
     Dosage: 80 UNITS
     Dates: start: 20230724

REACTIONS (6)
  - Abnormal behaviour [Unknown]
  - Injection site pain [Unknown]
  - Injection site injury [Unknown]
  - Injection site bruising [Unknown]
  - Injection site discharge [Unknown]
  - Underdose [Unknown]
